FAERS Safety Report 23567517 (Version 2)
Quarter: 2024Q2

REPORT INFORMATION
  Report Type: Spontaneous
  Country: US (occurrence: US)
  Receive Date: 20240226
  Receipt Date: 20240522
  Transmission Date: 20240715
  Serious: No
  Sender: FDA-Public Use
  Company Number: US-Calliditas-2024CAL00253

PATIENT
  Age: 33 Year
  Sex: Female

DRUGS (1)
  1. TARPEYO [Suspect]
     Active Substance: BUDESONIDE
     Indication: IgA nephropathy
     Dosage: 16 MG (4 MG CAPSULES) ONCE DAILY
     Route: 048
     Dates: start: 20240203

REACTIONS (4)
  - Blood pressure increased [Unknown]
  - Increased tendency to bruise [Unknown]
  - Muscle spasms [Recovered/Resolved]
  - Glomerular filtration rate decreased [Unknown]
